FAERS Safety Report 6646608-4 (Version None)
Quarter: 2010Q1

REPORT INFORMATION
  Report Type: 
  Country: None (occurrence: None)
  Receive Date: 20100323
  Receipt Date: 20100316
  Transmission Date: 20100710
  Serious: Yes (Death, Hospitalization, Other)
  Sender: FDA-Public Use
  Company Number: DE-GENZYME-POMP-1000879

PATIENT
  Sex: Male
  Weight: 14.6 kg

DRUGS (2)
  1. MYOZYME [Suspect]
     Indication: GLYCOGEN STORAGE DISEASE TYPE II
     Dosage: 20 MG/KG, Q2W
     Route: 042
     Dates: start: 20061127, end: 20100302
  2. MYOZYME [Suspect]
     Dosage: 40 MG/KG, ONCE
     Route: 042
     Dates: start: 20100302, end: 20100302

REACTIONS (5)
  - BRONCHOPNEUMONIA [None]
  - MUSCLE ATROPHY [None]
  - MYOPATHY [None]
  - RESPIRATORY FAILURE [None]
  - WEIGHT DECREASED [None]
